FAERS Safety Report 6288077-2 (Version None)
Quarter: 2009Q3

REPORT INFORMATION
  Report Type: 
  Country: None (occurrence: None)
  Receive Date: 20090729
  Receipt Date: 20090722
  Transmission Date: 20100115
  Serious: Yes (Life-Threatening, Hospitalization, Other)
  Sender: FDA-Public Use
  Company Number: PHHY2009FR30555

PATIENT
  Sex: Male

DRUGS (5)
  1. VOLTAREN [Suspect]
     Indication: BACK PAIN
     Dosage: UNK
     Route: 048
     Dates: start: 20081001
  2. VOLTAREN [Suspect]
     Dosage: 100 MG, UNK
     Route: 048
     Dates: start: 20081229, end: 20090203
  3. VOLTAREN [Concomitant]
     Indication: BACK PAIN
     Route: 061
  4. NSAID'S [Concomitant]
     Indication: BACK PAIN
  5. MOBIC [Concomitant]
     Indication: BACK PAIN
     Dosage: UNK
     Dates: start: 20081124, end: 20081228

REACTIONS (8)
  - ALKALOSIS [None]
  - INFLAMMATION [None]
  - INFLUENZA [None]
  - LUNG ABSCESS [None]
  - LUNG DISORDER [None]
  - MALNUTRITION [None]
  - PLEURAL EFFUSION [None]
  - RESPIRATORY DEPRESSION [None]
